FAERS Safety Report 19080931 (Version 1)
Quarter: 2021Q1

REPORT INFORMATION
  Report Type: Spontaneous
  Country: US (occurrence: US)
  Receive Date: 20210331
  Receipt Date: 20210331
  Transmission Date: 20210420
  Serious: Yes (Hospitalization)
  Sender: FDA-Public Use
  Company Number: US-FARMAPROD-202103-0413

PATIENT
  Age: 88 Year
  Sex: Female

DRUGS (10)
  1. PANTOPRAZOLE SODIUM. [Concomitant]
     Active Substance: PANTOPRAZOLE SODIUM
     Dosage: DELAYED RELEASE TABLET
  2. REFRESH CELLUVISC [Concomitant]
     Active Substance: CARBOXYMETHYLCELLULOSE SODIUM
  3. OXERVATE [Suspect]
     Active Substance: CENEGERMIN-BKBJ
     Indication: NEUROTROPHIC KERATOPATHY
  4. ASPIRINE [Concomitant]
     Active Substance: ASPIRIN
  5. LOSARTAN POTASSIUM. [Concomitant]
     Active Substance: LOSARTAN POTASSIUM
  6. OXERVATE [Suspect]
     Active Substance: CENEGERMIN-BKBJ
     Indication: ULCERATIVE KERATITIS
     Route: 047
     Dates: start: 20210310
  7. OXERVATE [Suspect]
     Active Substance: CENEGERMIN-BKBJ
     Indication: EXPOSURE KERATITIS
  8. OXERVATE [Suspect]
     Active Substance: CENEGERMIN-BKBJ
     Indication: HYPOAESTHESIA EYE
  9. CARVEDILOL. [Concomitant]
     Active Substance: CARVEDILOL
  10. FUROSEMIDE. [Concomitant]
     Active Substance: FUROSEMIDE

REACTIONS (3)
  - Hospitalisation [Unknown]
  - Vision blurred [Unknown]
  - Wrong technique in product usage process [Unknown]

NARRATIVE: CASE EVENT DATE: 202103
